FAERS Safety Report 19246207 (Version 1)
Quarter: 2021Q2

REPORT INFORMATION
  Report Type: Spontaneous
  Country: EG (occurrence: EG)
  Receive Date: 20210512
  Receipt Date: 20210512
  Transmission Date: 20210717
  Serious: Yes (Death)
  Sender: FDA-Public Use
  Company Number: EG-PFIZER INC-2021366926

PATIENT
  Age: 84 Year
  Sex: Female

DRUGS (6)
  1. FASLODEX [Concomitant]
     Active Substance: FULVESTRANT
     Dosage: 500 MG 2IM AMPOULES EVERY 2 WEEKS FOR 3 TIMES THEN 2 AMPOULES EVERY 4 WEEKS
     Route: 030
  2. OSTEOCARE [Concomitant]
     Active Substance: CALCIUM\CHOLECALCIFEROL\MAGNESIUM\ZINC
     Dosage: UNK, 1X/DAY
  3. IBRANCE [Suspect]
     Active Substance: PALBOCICLIB
     Dosage: 125 MG
  4. IBRANCE [Suspect]
     Active Substance: PALBOCICLIB
     Dosage: 100 MG, CYCLIC (ONCE A DAY FOR 3 WEEKS AND 1 WEEK OFF)
     Route: 048
     Dates: end: 20210405
  5. PROLIA [Concomitant]
     Active Substance: DENOSUMAB
     Dosage: VIAL EVERY 6 MONTHS
     Route: 058
  6. MEGACE [Concomitant]
     Active Substance: MEGESTROL ACETATE
     Dosage: 160 MG, 1X/DAY

REACTIONS (1)
  - Death [Fatal]

NARRATIVE: CASE EVENT DATE: 20210405
